FAERS Safety Report 6521872-0 (Version None)
Quarter: 2009Q4

REPORT INFORMATION
  Report Type: 
  Country: None (occurrence: None)
  Receive Date: 20091230
  Receipt Date: 20091221
  Transmission Date: 20100525
  Serious: Yes (Other)
  Sender: FDA-Public Use
  Company Number: US-ASTRAZENECA-2009SE33005

PATIENT
  Age: 61 Year
  Sex: Female

DRUGS (5)
  1. ATENOLOL [Suspect]
     Route: 048
  2. ZESTRIL [Suspect]
     Route: 048
  3. HYDROCHLOROTHIAZIDE [Concomitant]
  4. ASPIRIN [Concomitant]
  5. VITAMINS [Concomitant]

REACTIONS (4)
  - ASTHENIA [None]
  - DIZZINESS [None]
  - HOT FLUSH [None]
  - LOSS OF CONSCIOUSNESS [None]
